FAERS Safety Report 4520760-9 (Version None)
Quarter: 2004Q4

REPORT INFORMATION
  Report Type: 
  Country: None (occurrence: None)
  Receive Date: 20041207
  Receipt Date: 20041202
  Transmission Date: 20050328
  Serious: Yes (Life-Threatening, Hospitalization)
  Sender: FDA-Public Use
  Company Number: US-MERCK-0412USA00462

PATIENT
  Age: 60 Year
  Sex: Male

DRUGS (9)
  1. VIOXX [Suspect]
     Indication: ARTHRALGIA
     Route: 048
     Dates: start: 20040901, end: 20040101
  2. LEXAPRO [Concomitant]
     Route: 065
  3. WELLBUTRIN [Concomitant]
     Route: 065
  4. MICARDIS [Concomitant]
     Route: 065
  5. ATENOLOL [Concomitant]
     Route: 065
  6. MICARDIS HCT [Concomitant]
     Route: 065
  7. PLAVIX [Concomitant]
     Route: 065
  8. ISOSORBIDE [Concomitant]
     Route: 065
  9. GLUCOPHAGE [Concomitant]
     Route: 065

REACTIONS (1)
  - CHEST PAIN [None]
